FAERS Safety Report 12236053 (Version 1)
Quarter: 2016Q2

REPORT INFORMATION
  Report Type: Spontaneous
  Country: US (occurrence: US)
  Receive Date: 20160404
  Receipt Date: 20160404
  Transmission Date: 20160815
  Serious: Yes (Disabling, Other)
  Sender: FDA-Public Use
  Company Number: US-SA-2016SA062170

PATIENT
  Age: 53 Year
  Sex: Male

DRUGS (5)
  1. SOLOSTAR [Concomitant]
     Active Substance: DEVICE
     Dates: start: 201202
  2. APIDRA SOLOSTAR [Suspect]
     Active Substance: INSULIN GLULISINE
     Indication: DIABETES MELLITUS
     Dosage: DOSE: 50 OR 60 UNITS
     Route: 065
     Dates: start: 201202, end: 201601
  3. HUMALOG [Concomitant]
     Active Substance: INSULIN LISPRO
  4. SOLOSTAR [Concomitant]
     Active Substance: DEVICE
     Dates: start: 201202, end: 201601
  5. LANTUS SOLOSTAR [Suspect]
     Active Substance: INSULIN GLARGINE
     Indication: DIABETES MELLITUS
     Dosage: DOSE:50 UNIT(S)
     Route: 065
     Dates: start: 201202

REACTIONS (8)
  - Blood glucose increased [Unknown]
  - Brain injury [Unknown]
  - Dizziness [Unknown]
  - Amnesia [Unknown]
  - Blood glucose decreased [Unknown]
  - Product use issue [Unknown]
  - Diabetes mellitus inadequate control [Unknown]
  - Product use issue [Unknown]

NARRATIVE: CASE EVENT DATE: 201202
